FAERS Safety Report 25554758 (Version 1)
Quarter: 2025Q3

REPORT INFORMATION
  Report Type: Spontaneous
  Country: JP (occurrence: JP)
  Receive Date: 20250715
  Receipt Date: 20250715
  Transmission Date: 20251021
  Serious: Yes (Other)
  Sender: AMGEN
  Company Number: JP-AMGEN-JPNSP2025134400

PATIENT
  Age: 79 Year

DRUGS (6)
  1. SOTORASIB [Suspect]
     Active Substance: SOTORASIB
     Indication: Neuroendocrine tumour of the lung
     Dosage: 960 MILLIGRAM, QD
     Route: 065
  2. SOTORASIB [Suspect]
     Active Substance: SOTORASIB
     Dosage: 480 MILLIGRAM, QD
     Route: 065
  3. SOTORASIB [Suspect]
     Active Substance: SOTORASIB
     Dosage: 240 MILLIGRAM, QD
     Route: 065
  4. CARBOPLATIN [Concomitant]
     Active Substance: CARBOPLATIN
     Indication: Neuroendocrine tumour of the lung
  5. ETOPOSIDE [Concomitant]
     Active Substance: ETOPOSIDE
     Indication: Neuroendocrine tumour of the lung
  6. ATEZOLIZUMAB [Concomitant]
     Active Substance: ATEZOLIZUMAB
     Indication: Neuroendocrine tumour of the lung
     Dosage: 1200 MILLIGRAM PER BODY, Q3WK

REACTIONS (3)
  - Neuroendocrine tumour of the lung metastatic [Unknown]
  - Therapy partial responder [Unknown]
  - Hepatobiliary disease [Unknown]
